FAERS Safety Report 23753154 (Version 1)
Quarter: 2024Q2

REPORT INFORMATION
  Report Type: Spontaneous
  Country: US (occurrence: None)
  Receive Date: 20240417
  Receipt Date: 20240417
  Transmission Date: 20240715
  Serious: Yes (Other)
  Sender: FDA-Public Use
  Company Number: None

PATIENT
  Age: 70 Year
  Sex: Female
  Weight: 60.75 kg

DRUGS (16)
  1. ATORVASTATIN [Suspect]
     Active Substance: ATORVASTATIN
     Indication: Blood cholesterol increased
     Dosage: 1 TABLET  AT BEDTIME ORAL?
     Route: 048
     Dates: start: 20230110
  2. cardic stent [Concomitant]
  3. METOPROLOL [Concomitant]
  4. ISOSORBIDE DINITRATE [Concomitant]
     Active Substance: ISOSORBIDE DINITRATE
  5. ROSUVASTATIN [Concomitant]
  6. ZETIA [Concomitant]
     Active Substance: EZETIMIBE
  7. LEVOTHYROXINE [Concomitant]
  8. Astelin [Concomitant]
  9. MOMETASONE [Concomitant]
  10. vitamin D3/K2 [Concomitant]
  11. UBIQUINOL [Concomitant]
  12. multivitamin [Concomitant]
  13. MELATONIN [Concomitant]
  14. acetominphen [Concomitant]
  15. COLACE [Concomitant]
     Active Substance: DOCUSATE SODIUM
  16. ROSUVASTATIN [Suspect]
     Active Substance: ROSUVASTATIN

REACTIONS (8)
  - Blood glucose increased [None]
  - Aspartate aminotransferase increased [None]
  - Alanine aminotransferase increased [None]
  - Fatigue [None]
  - Muscular weakness [None]
  - Pain [None]
  - Brain fog [None]
  - Product communication issue [None]

NARRATIVE: CASE EVENT DATE: 20240416
